FAERS Safety Report 16656281 (Version 1)
Quarter: 2019Q3

REPORT INFORMATION
  Report Type: Spontaneous
  Country: SE (occurrence: SE)
  Receive Date: 20190801
  Receipt Date: 20190801
  Transmission Date: 20191004
  Serious: Yes (Life-Threatening, Hospitalization, Disabling)
  Sender: FDA-Public Use
  Company Number: PHHY2019SE176115

PATIENT
  Age: 14 Year
  Sex: Male
  Weight: 55 kg

DRUGS (11)
  1. ABILIFY [Concomitant]
     Active Substance: ARIPIPRAZOLE
     Indication: PRODUCT USED FOR UNKNOWN INDICATION
     Route: 065
  2. MELATONIN [Concomitant]
     Active Substance: MELATONIN
     Indication: PRODUCT USED FOR UNKNOWN INDICATION
     Dosage: 5 MG, QD
     Route: 065
  3. THERALEN [Concomitant]
     Active Substance: TRIMEPRAZINE
     Indication: PRODUCT USED FOR UNKNOWN INDICATION
     Dosage: 0.25 ML, 0,25 ML VID BEHOV, MAX 1 ML PER DYGN
     Route: 065
  4. OLANZAPINE. [Suspect]
     Active Substance: OLANZAPINE
     Indication: PSYCHOTIC SYMPTOM
     Dosage: UNK
     Route: 065
     Dates: start: 20160702
  5. OLANZAPINE. [Suspect]
     Active Substance: OLANZAPINE
     Dosage: UNK
     Route: 065
     Dates: start: 20161225, end: 20161228
  6. OLANZAPINE. [Suspect]
     Active Substance: OLANZAPINE
     Dosage: UNK
     Route: 065
     Dates: start: 20161229, end: 20170102
  7. OLANZAPINE. [Suspect]
     Active Substance: OLANZAPINE
     Dosage: UNK (FAR INSATT EXTRA 2.5 MG OLANZAPIN ATT TA VID BEHOV)
     Route: 065
     Dates: start: 20160703, end: 20161224
  8. OLANZAPINE. [Suspect]
     Active Substance: OLANZAPINE
     Dosage: UNK
     Route: 065
     Dates: start: 20170103, end: 20170129
  9. RISPERIDONE. [Concomitant]
     Active Substance: RISPERIDONE
     Indication: PRODUCT USED FOR UNKNOWN INDICATION
     Route: 065
  10. NOZINAN [Concomitant]
     Active Substance: LEVOMEPROMAZINE
     Indication: PRODUCT USED FOR UNKNOWN INDICATION
     Route: 065
  11. STESOLID [Concomitant]
     Active Substance: DIAZEPAM
     Indication: PRODUCT USED FOR UNKNOWN INDICATION
     Dosage: 5 MG, (1 TABLETT VID BEHOV HOGST 2 TABLETTER PER DYGN)
     Route: 065

REACTIONS (7)
  - Confusional state [Recovered/Resolved with Sequelae]
  - Mydriasis [Recovered/Resolved with Sequelae]
  - Musculoskeletal stiffness [Recovered/Resolved with Sequelae]
  - Staring [Recovered/Resolved with Sequelae]
  - Product prescribing error [Recovered/Resolved with Sequelae]
  - Weight increased [Recovered/Resolved]
  - Back disorder [Recovered/Resolved with Sequelae]

NARRATIVE: CASE EVENT DATE: 201607
